FAERS Safety Report 7504458-0 (Version None)
Quarter: 2011Q2

REPORT INFORMATION
  Report Type: 
  Country: None (occurrence: None)
  Receive Date: 20110525
  Receipt Date: 20100110
  Transmission Date: 20111010
  Serious: Yes (Death, Other)
  Sender: FDA-Public Use
  Company Number: US-BAYER-201010633NA

PATIENT
  Age: 63 Year
  Sex: Female
  Weight: 122 kg

DRUGS (30)
  1. ETOMIDATE [Concomitant]
     Dosage: UNK
     Route: 042
     Dates: start: 20020326, end: 20020326
  2. FENTANYL [Concomitant]
     Dosage: UNK
     Route: 042
     Dates: start: 20020326, end: 20020326
  3. LIDOCAINE [Concomitant]
     Dosage: UNK
     Route: 042
     Dates: start: 20020326, end: 20020326
  4. PANCURONIUM BROMIDE [Concomitant]
     Dosage: UNK
     Route: 042
     Dates: start: 20020326, end: 20020326
  5. PHENYLEPHRINE HCL [Concomitant]
     Dosage: UNK
     Route: 042
     Dates: start: 20020326, end: 20020326
  6. ALBUTEROL SULFATE AUTOHALER [Concomitant]
     Dosage: UNK
     Route: 042
     Dates: start: 20020326, end: 20020326
  7. TRASYLOL [Suspect]
     Indication: AORTIC VALVE REPLACEMENT
     Dosage: UNK
     Route: 042
     Dates: start: 20020326, end: 20020326
  8. HYDROCHLOROTHIAZIDE [Concomitant]
     Dosage: 25 MG, UNK
     Route: 048
  9. ALTACE [Concomitant]
     Dosage: 5 MG, QD
     Route: 048
  10. HEPARIN [Concomitant]
     Dosage: UNK
     Route: 042
     Dates: start: 20020326, end: 20020326
  11. SODIUM BICARBONATE [Concomitant]
     Dosage: UNK
     Route: 042
     Dates: start: 20020326, end: 20020326
  12. ALBUMIN (HUMAN) [Concomitant]
     Dosage: UNK
     Route: 042
     Dates: start: 20020326, end: 20020326
  13. LABETALOL [Concomitant]
     Dosage: UNK
     Route: 042
     Dates: start: 20020326, end: 20020326
  14. INSULIN [Concomitant]
     Dosage: UNK
     Route: 042
     Dates: start: 20020326, end: 20020326
  15. EPHEDRINE [Concomitant]
     Dosage: UNK
     Route: 042
     Dates: start: 20020326, end: 20020326
  16. MIDAZOLAM HCL [Concomitant]
     Dosage: UNK
     Route: 042
     Dates: start: 20020326, end: 20020326
  17. FERROUS SULFATE TAB [Concomitant]
     Dosage: 325 MG, BID
     Route: 048
  18. GLIPIZIDE [Concomitant]
     Dosage: 10 MG, QD
     Route: 048
  19. MAGNESIUM SULFATE [Concomitant]
     Dosage: 2 G, UNK
     Route: 042
     Dates: start: 20020326, end: 20020326
  20. FORANE [Concomitant]
     Dosage: UNK
     Route: 042
     Dates: start: 20020326, end: 20020326
  21. BENADRYL [Concomitant]
     Dosage: UNK
     Route: 042
     Dates: start: 20020326, end: 20020326
  22. PROTAMINE SULFATE [Concomitant]
     Dosage: UNK
     Route: 042
     Dates: start: 20020326, end: 20020326
  23. TORADOL [Concomitant]
     Dosage: UNK
     Route: 042
     Dates: start: 20020326, end: 20020326
  24. PROSTIGMIN BROMIDE [Concomitant]
     Dosage: UNK
     Route: 042
     Dates: start: 20020326, end: 20020326
  25. NITROGLYCERIN [Concomitant]
     Dosage: UNK
     Route: 042
     Dates: start: 20020326, end: 20020326
  26. ACETYLSALICYLIC ACID SRT [Concomitant]
     Dosage: 325 MG, UNK
     Route: 048
  27. MANNITOL [Concomitant]
     Dosage: UNK
     Route: 042
     Dates: start: 20020326, end: 20020326
  28. ANCEF [Concomitant]
     Dosage: UNK
     Route: 042
     Dates: start: 20020326, end: 20020326
  29. MORPHINE [Concomitant]
     Dosage: UNK
     Route: 042
     Dates: start: 20020326, end: 20020326
  30. ISUPREL [Concomitant]
     Dosage: UNK
     Route: 042
     Dates: start: 20020326, end: 20020326

REACTIONS (11)
  - RENAL FAILURE [None]
  - UNEVALUABLE EVENT [None]
  - INJURY [None]
  - PAIN [None]
  - ANXIETY [None]
  - ANHEDONIA [None]
  - CEREBROVASCULAR ACCIDENT [None]
  - MYOCARDIAL INFARCTION [None]
  - DEATH [None]
  - DEPRESSION [None]
  - FEAR [None]
